FAERS Safety Report 6786099-6 (Version None)
Quarter: 2010Q2

REPORT INFORMATION
  Report Type: 
  Country: None (occurrence: None)
  Receive Date: 20100622
  Receipt Date: 20100622
  Transmission Date: 20101027
  Serious: Yes (Other)
  Sender: FDA-Public Use
  Company Number: None

PATIENT
  Age: 65 Year
  Sex: Female
  Weight: 101.1521 kg

DRUGS (1)
  1. TYLENOL (CAPLET) [Suspect]
     Indication: PROCEDURAL PAIN
     Dosage: 500 MG. 2 EVERY 4 HOURS PO
     Route: 048
     Dates: start: 20100611, end: 20100612

REACTIONS (9)
  - ABDOMINAL DISCOMFORT [None]
  - ARTHRALGIA [None]
  - ASTHENIA [None]
  - FATIGUE [None]
  - HYPOPHAGIA [None]
  - INITIAL INSOMNIA [None]
  - NAUSEA [None]
  - TOOTHACHE [None]
  - VOMITING [None]
